FAERS Safety Report 17512441 (Version 2)
Quarter: 2020Q2

REPORT INFORMATION
  Report Type: Report from Study
  Country: US (occurrence: US)
  Receive Date: 20200306
  Receipt Date: 20200408
  Transmission Date: 20200713
  Serious: Yes (Other)
  Sender: FDA-Public Use
  Company Number: US-JNJFOC-20200238724

PATIENT
  Sex: Female

DRUGS (2)
  1. SPRAVATO [Suspect]
     Active Substance: ESKETAMINE
     Indication: DEPRESSION
     Dosage: 2, 56 MG DOSES
  2. LAMOTRIGINE. [Concomitant]
     Active Substance: LAMOTRIGINE
     Dates: start: 2020

REACTIONS (8)
  - Bipolar disorder [Unknown]
  - Somnolence [Not Recovered/Not Resolved]
  - Mania [Not Recovered/Not Resolved]
  - Euphoric mood [Unknown]
  - Dissociation [Not Recovered/Not Resolved]
  - Drug ineffective [Unknown]
  - Panic attack [Not Recovered/Not Resolved]
  - Feeling abnormal [Not Recovered/Not Resolved]

NARRATIVE: CASE EVENT DATE: 2020
